FAERS Safety Report 8534210-9 (Version None)
Quarter: 2012Q3

REPORT INFORMATION
  Report Type: 
  Country: None (occurrence: None)
  Receive Date: 20120724
  Receipt Date: 20120716
  Transmission Date: 20120928
  Serious: Yes (Hospitalization)
  Sender: FDA-Public Use
  Company Number: US-ACTELION-A-US2007-14736

PATIENT

DRUGS (4)
  1. LASIX [Concomitant]
  2. OXYGEN [Concomitant]
  3. TRACLEER [Suspect]
     Indication: PULMONARY ARTERIAL HYPERTENSION
     Dosage: UNK
     Route: 048
     Dates: start: 20060918
  4. CALCIUM CHANNEL BLOCKERS [Concomitant]

REACTIONS (9)
  - CARDIAC DISORDER [None]
  - DYSPNOEA [None]
  - OEDEMA PERIPHERAL [None]
  - FLUID RETENTION [None]
  - INFLUENZA [None]
  - HEADACHE [None]
  - OEDEMA [None]
  - PALPITATIONS [None]
  - HEART RATE IRREGULAR [None]
